FAERS Safety Report 4287301-5 (Version None)
Quarter: 2004Q1

REPORT INFORMATION
  Report Type: 
  Country: None (occurrence: None)
  Receive Date: 20040205
  Receipt Date: 20040128
  Transmission Date: 20041129
  Serious: Yes (Hospitalization)
  Sender: FDA-Public Use
  Company Number: 2004UW01601

PATIENT
  Age: 31 Year
  Sex: Female

DRUGS (3)
  1. SEROQUEL [Suspect]
     Dosage: 300 MG HS PO
     Route: 048
  2. EFFEXOR [Concomitant]
  3. HALDOL DECANOATE 100 [Concomitant]

REACTIONS (1)
  - DYSTONIA [None]
